FAERS Safety Report 8476847-1 (Version None)
Quarter: 2012Q2

REPORT INFORMATION
  Report Type: 
  Country: None (occurrence: None)
  Receive Date: 20120629
  Receipt Date: 20120622
  Transmission Date: 20120825
  Serious: Yes (Hospitalization)
  Sender: FDA-Public Use
  Company Number: US-BIOGENIDEC-2012BI014671

PATIENT
  Age: 40 Year
  Sex: Male

DRUGS (6)
  1. ASPIRIN [Concomitant]
     Indication: PRODUCT USED FOR UNKNOWN INDICATION
  2. KEPPRA [Concomitant]
     Indication: CONVULSION
  3. TYSABRI [Suspect]
     Indication: MULTIPLE SCLEROSIS
     Route: 042
     Dates: start: 20070711, end: 20120210
  4. FLOMAX [Concomitant]
     Indication: AUTOMATIC BLADDER
  5. PRAVASTATIN [Concomitant]
     Indication: HYPERLIPIDAEMIA
  6. STEROIDS (NOS) [Concomitant]
     Indication: PRODUCT USED FOR UNKNOWN INDICATION

REACTIONS (3)
  - HEAD INJURY [None]
  - LOSS OF CONSCIOUSNESS [None]
  - FALL [None]
